FAERS Safety Report 10620349 (Version 1)
Quarter: 2014Q4

REPORT INFORMATION
  Report Type: Spontaneous
  Country: US (occurrence: None)
  Receive Date: 20141201
  Receipt Date: 20141201
  Transmission Date: 20150529
  Serious: No
  Sender: FDA-Public Use
  Company Number: None

PATIENT
  Age: 28 Year
  Sex: Female
  Weight: 83.92 kg

DRUGS (1)
  1. DEPO-PROVERA [Suspect]
     Active Substance: MEDROXYPROGESTERONE ACETATE
     Indication: CONTRACEPTION
     Dosage: 1 SHOT EVERY 3 MONTHS INTO THE MUSCLE
     Route: 030

REACTIONS (13)
  - Pollakiuria [None]
  - Chromaturia [None]
  - Urticaria [None]
  - Asthenia [None]
  - Irritability [None]
  - Pain [None]
  - Urinary tract infection [None]
  - Pruritus [None]
  - Depression [None]
  - Headache [None]
  - Contusion [None]
  - Mood swings [None]
  - Sinusitis [None]

NARRATIVE: CASE EVENT DATE: 20141016
